FAERS Safety Report 7924815-8 (Version None)
Quarter: 2011Q4

REPORT INFORMATION
  Report Type: 
  Country: None (occurrence: None)
  Receive Date: 20111118
  Receipt Date: 20111114
  Transmission Date: 20120403
  Serious: Yes (Death, Hospitalization)
  Sender: FDA-Public Use
  Company Number: US-BRISTOL-MYERS SQUIBB COMPANY-15267099

PATIENT
  Age: 57 Year
  Sex: Male
  Weight: 101 kg

DRUGS (16)
  1. DEXAMETHASONE [Concomitant]
     Indication: PROPHYLAXIS
     Dates: start: 20100615
  2. PROCHLORPERAZINE MALEATE [Concomitant]
     Indication: NAUSEA
     Dates: start: 20100615
  3. ONDANSETRON HYDROCHLORIDE [Concomitant]
     Indication: NAUSEA
     Dates: start: 20100615
  4. FENOFIBRATE [Concomitant]
     Indication: HYPERCHOLESTEROLAEMIA
     Dates: start: 20100501
  5. ONDANSETRON HYDROCHLORIDE [Concomitant]
     Indication: VOMITING
     Dates: start: 20100615
  6. CARBOPLATIN [Suspect]
     Indication: NON-SMALL CELL LUNG CANCER
     Route: 042
     Dates: start: 20100622, end: 20100803
  7. PEMETREXED DISODIUM [Suspect]
     Indication: NON-SMALL CELL LUNG CANCER
     Route: 042
     Dates: start: 20100622, end: 20100803
  8. FENTANYL [Concomitant]
     Indication: PAIN MANAGEMENT
     Dates: start: 20100615
  9. METFORMIN HCL [Concomitant]
     Indication: TYPE 2 DIABETES MELLITUS
     Dates: start: 20060401
  10. LORAZEPAM [Concomitant]
     Indication: NAUSEA
     Dates: start: 20100815
  11. FOLIC ACID [Concomitant]
     Indication: PROPHYLAXIS
     Dates: start: 20100615
  12. LORAZEPAM [Concomitant]
     Indication: ANXIETY
     Dates: start: 20100815
  13. LIDOCAINE [Concomitant]
     Indication: PAIN MANAGEMENT
     Dates: start: 20100803
  14. VITAMIN B-12 [Concomitant]
     Indication: PROPHYLAXIS
     Dates: start: 20100615
  15. BEVACIZUMAB [Suspect]
     Indication: NON-SMALL CELL LUNG CANCER
     Route: 042
     Dates: start: 20100622, end: 20100803
  16. WARFARIN SODIUM [Concomitant]
     Indication: ANTICOAGULANT THERAPY
     Dates: start: 20100517

REACTIONS (2)
  - MICROANGIOPATHIC HAEMOLYTIC ANAEMIA [None]
  - CEREBROVASCULAR ACCIDENT [None]
